FAERS Safety Report 8152696-9 (Version None)
Quarter: 2012Q1

REPORT INFORMATION
  Report Type: 
  Country: None (occurrence: None)
  Receive Date: 20120221
  Receipt Date: 20120206
  Transmission Date: 20120608
  Serious: Yes (Death)
  Sender: FDA-Public Use
  Company Number: NL-SANOFI-AVENTIS-2012SA007831

PATIENT
  Age: 75 Year
  Sex: Female

DRUGS (4)
  1. PRIMPERAN TAB [Suspect]
     Route: 065
  2. LORAZEPAM [Suspect]
     Route: 048
  3. FLURAZEPAM [Suspect]
     Route: 048
  4. PLAQUENIL [Suspect]
     Route: 048

REACTIONS (3)
  - SUBSTANCE ABUSE [None]
  - CARDIAC ARREST [None]
  - EUTHANASIA [None]
